FAERS Safety Report 9338133 (Version 1)
Quarter: 2013Q2

REPORT INFORMATION
  Report Type: Spontaneous
  Country: US (occurrence: None)
  Receive Date: 20130605
  Receipt Date: 20130605
  Transmission Date: 20140414
  Serious: Yes (Hospitalization)
  Sender: FDA-Public Use
  Company Number: None

PATIENT
  Age: 54 Year
  Sex: Male
  Weight: 68.04 kg

DRUGS (7)
  1. CLOZARIL [Suspect]
     Indication: SCHIZOPHRENIA
     Route: 048
     Dates: start: 20130426, end: 20130517
  2. INSULIN REGULAR SLIDING SCALE [Concomitant]
  3. BETAMETHASONE DIPRO [Concomitant]
  4. DIVALPROEX SODIUM 1000 MG [Concomitant]
  5. FOLIC ACID [Concomitant]
  6. ?HYDROCORTISONE 0.5% [Concomitant]
  7. SENNOSIDES [Concomitant]

REACTIONS (6)
  - Abnormal behaviour [None]
  - Pyrexia [None]
  - Hyperhidrosis [None]
  - Agranulocytosis [None]
  - Hyponatraemia [None]
  - Polydipsia psychogenic [None]
